FAERS Safety Report 8382368-7 (Version None)
Quarter: 2012Q2

REPORT INFORMATION
  Report Type: 
  Country: None (occurrence: None)
  Receive Date: 20120524
  Receipt Date: 20120514
  Transmission Date: 20120825
  Serious: Yes (Hospitalization, Other)
  Sender: FDA-Public Use
  Company Number: US-ELI_LILLY_AND_COMPANY-US201205005626

PATIENT
  Sex: Female

DRUGS (6)
  1. LIBRIUM [Concomitant]
     Dosage: UNK
  2. MECLIZINE [Concomitant]
     Dosage: UNK
  3. HUMULIN 70/30 [Suspect]
     Indication: DIABETES MELLITUS
     Dosage: 15 U, EACH MORNING
     Dates: start: 19950101
  4. HUMULIN 70/30 [Suspect]
     Dosage: 10 U, EACH EVENING
     Dates: start: 19950101
  5. DIGOXIN [Concomitant]
     Dosage: UNK
  6. LANTUS [Concomitant]
     Dosage: UNK

REACTIONS (6)
  - INSOMNIA [None]
  - PANCREATIC NEOPLASM [None]
  - INTRAOCULAR LENS IMPLANT [None]
  - VISUAL ACUITY REDUCED [None]
  - BLOOD GLUCOSE DECREASED [None]
  - MEMORY IMPAIRMENT [None]
